FAERS Safety Report 26115642 (Version 1)
Quarter: 2025Q4

REPORT INFORMATION
  Report Type: Report from Study
  Country: CO (occurrence: CO)
  Receive Date: 20251203
  Receipt Date: 20251203
  Transmission Date: 20260119
  Serious: Yes (Hospitalization, Other)
  Sender: ABBVIE
  Company Number: CO-ABBVIE-6570984

PATIENT
  Age: 74 Year
  Sex: Female
  Weight: 56 kg

DRUGS (2)
  1. VENCLEXTA [Suspect]
     Active Substance: VENETOCLAX
     Indication: Acute myeloid leukaemia
     Dosage: FORM STRENGTH- 100 MG
     Route: 048
     Dates: start: 20250620, end: 20251027
  2. AZACITIDINE [Concomitant]
     Active Substance: AZACITIDINE
     Indication: Acute myeloid leukaemia
     Dates: start: 202510

REACTIONS (7)
  - Discouragement [Not Recovered/Not Resolved]
  - Platelet count decreased [Unknown]
  - Immunosuppression [Unknown]
  - Haemoglobin decreased [Unknown]
  - Acute myeloid leukaemia refractory [Unknown]
  - Blast cell count decreased [Unknown]
  - Drug ineffective [Unknown]

NARRATIVE: CASE EVENT DATE: 20250101
